FAERS Safety Report 6740645-7 (Version None)
Quarter: 2010Q2

REPORT INFORMATION
  Report Type: 
  Country: None (occurrence: None)
  Receive Date: 20100521
  Receipt Date: 20100510
  Transmission Date: 20101027
  Serious: Yes (Other)
  Sender: FDA-Public Use
  Company Number: 2010AL002801

PATIENT
  Sex: Female

DRUGS (1)
  1. RAMIPRIL [Suspect]
     Dosage: 10 MG;PO
     Route: 048

REACTIONS (2)
  - BLOOD PRESSURE INCREASED [None]
  - MYALGIA [None]
